FAERS Safety Report 14111620 (Version 1)
Quarter: 2017Q4

REPORT INFORMATION
  Report Type: Report from Study
  Country: GB (occurrence: GB)
  Receive Date: 20171020
  Receipt Date: 20171020
  Transmission Date: 20180321
  Serious: Yes (Other)
  Sender: FDA-Public Use
  Company Number: GB-UCBSA-2017041375

PATIENT
  Age: 68 Year
  Sex: Male

DRUGS (6)
  1. ROTIGOTINE [Suspect]
     Active Substance: ROTIGOTINE
     Indication: PARKINSON^S DISEASE
     Dosage: UNK
  2. AMANTADINE. [Concomitant]
     Active Substance: AMANTADINE HYDROCHLORIDE
     Indication: PRODUCT USED FOR UNKNOWN INDICATION
     Dosage: UNK
  3. ROPINIROL [Concomitant]
     Active Substance: ROPINIROLE
     Indication: PRODUCT USED FOR UNKNOWN INDICATION
     Dosage: UNK
  4. MADOPAR [Concomitant]
     Active Substance: BENSERAZIDE HYDROCHLORIDE\LEVODOPA
     Indication: PRODUCT USED FOR UNKNOWN INDICATION
     Dosage: UNK
  5. SELEGILINE [Concomitant]
     Active Substance: SELEGILINE
     Indication: PRODUCT USED FOR UNKNOWN INDICATION
     Dosage: UNK
  6. RASAGILINE. [Concomitant]
     Active Substance: RASAGILINE
     Indication: PRODUCT USED FOR UNKNOWN INDICATION
     Dosage: UNK

REACTIONS (22)
  - Dysphagia [Unknown]
  - Sleep talking [Unknown]
  - Stress [Unknown]
  - Memory impairment [Unknown]
  - Disturbance in attention [Unknown]
  - Ageusia [Unknown]
  - Paraesthesia [Unknown]
  - Constipation [Unknown]
  - Drooling [Unknown]
  - Hypoaesthesia [Unknown]
  - Hyperhidrosis [Unknown]
  - Asthenia [Unknown]
  - Sensory loss [Unknown]
  - Nightmare [Unknown]
  - Middle insomnia [Unknown]
  - Sexual dysfunction [Unknown]
  - Balance disorder [Unknown]
  - Choking [Unknown]
  - Initial insomnia [Unknown]
  - Dizziness [Unknown]
  - Anosmia [Unknown]
  - Tremor [Unknown]
